FAERS Safety Report 5934284-5 (Version None)
Quarter: 2008Q4

REPORT INFORMATION
  Report Type: 
  Country: None (occurrence: None)
  Receive Date: 20081029
  Receipt Date: 20081017
  Transmission Date: 20090506
  Serious: Yes (Other)
  Sender: FDA-Public Use
  Company Number: PHHY2008JP20895

PATIENT
  Age: 64 Year
  Sex: Male

DRUGS (6)
  1. DIOVAN [Suspect]
     Indication: HYPERTENSION
     Dosage: 80 MG, QD
     Route: 048
     Dates: start: 20021109
  2. AMLODIN [Concomitant]
     Dosage: 5 MG
  3. ZYLORIC ^FRESENIUS^ [Concomitant]
  4. URALYT [Concomitant]
  5. POTASSIUM CITRATE W/SODIUM CITRATE [Concomitant]
  6. ALPRAZOLAM [Concomitant]

REACTIONS (3)
  - BLOOD SODIUM DECREASED [None]
  - HORMONE LEVEL ABNORMAL [None]
  - SMALL CELL LUNG CANCER STAGE UNSPECIFIED [None]
